FAERS Safety Report 17995131 (Version 1)
Quarter: 2020Q3

REPORT INFORMATION
  Report Type: Spontaneous
  Country: CN (occurrence: CN)
  Receive Date: 20200708
  Receipt Date: 20200708
  Transmission Date: 20201103
  Serious: Yes (Other)
  Sender: FDA-Public Use
  Company Number: CN-PFIZER INC-2020258132

PATIENT
  Age: 63 Year
  Sex: Female
  Weight: 58 kg

DRUGS (4)
  1. ATORVASTATIN CALCIUM. [Suspect]
     Active Substance: ATORVASTATIN CALCIUM
     Indication: ARTHROPATHY
     Dosage: 20 MG, 1X/DAY
     Route: 048
     Dates: start: 20200617, end: 20200623
  2. CELEBREX [Suspect]
     Active Substance: CELECOXIB
     Indication: ANALGESIC THERAPY
  3. CELEBREX [Suspect]
     Active Substance: CELECOXIB
     Indication: ARTHROPATHY
     Dosage: 0.2 G, 2X/DAY
     Route: 048
     Dates: start: 20200619
  4. DALTEPARIN SODIUM [Concomitant]
     Active Substance: DALTEPARIN SODIUM
     Indication: ARTHROPATHY
     Dosage: 5000 DF, 1X/DAY
     Route: 058
     Dates: start: 20200618, end: 20200701

REACTIONS (2)
  - Hepatic function abnormal [Recovering/Resolving]
  - Gamma-glutamyltransferase increased [Recovering/Resolving]

NARRATIVE: CASE EVENT DATE: 20200621
